FAERS Safety Report 8822373 (Version 1)
Quarter: 2012Q4

REPORT INFORMATION
  Report Type: 
  Country: FR (occurrence: FR)
  Receive Date: 20121003
  Receipt Date: 20121003
  Transmission Date: 20130627
  Serious: Yes (Hospitalization)
  Sender: FDA-Public Use
  Company Number: PHHY2012FR085490

PATIENT
  Age: 82 Year
  Sex: Male

DRUGS (6)
  1. ZOMETA [Suspect]
     Indication: METASTASES TO BONE
     Dosage: 1 DF, monthly
     Dates: start: 201208
  2. CASODEX [Suspect]
     Indication: PROSTATE CANCER
     Dosage: 50 mg, QD
  3. IMOVANE [Suspect]
     Dosage: UNK UKN, UNK
  4. CETIRIZINE [Suspect]
     Indication: RASH
     Dosage: UNK UKN, UNK
  5. OXYCODONE [Suspect]
     Indication: BONE PAIN
     Dosage: UNK UKN, UNK
  6. MIDODRINE [Suspect]
     Dosage: 2.5 mg, TID

REACTIONS (1)
  - Parotitis [Recovered/Resolved]
